FAERS Safety Report 6838793-6 (Version None)
Quarter: 2010Q3

REPORT INFORMATION
  Report Type: 
  Country: None (occurrence: None)
  Receive Date: 20100713
  Receipt Date: 20070801
  Transmission Date: 20110219
  Serious: No
  Sender: FDA-Public Use
  Company Number: US-PFIZER INC-2007049674

PATIENT
  Sex: Female
  Weight: 80.9 kg

DRUGS (13)
  1. CHANTIX [Suspect]
     Indication: SMOKING CESSATION THERAPY
     Dates: start: 20070501
  2. DRUG, UNSPECIFIED [Interacting]
  3. NEURONTIN [Concomitant]
  4. OXYCONTIN [Concomitant]
  5. FLEXERIL [Concomitant]
  6. ZOLOFT [Concomitant]
  7. LASIX [Concomitant]
  8. POTASSIUM [Concomitant]
  9. TRICOR [Concomitant]
  10. FISH OIL [Concomitant]
  11. CENTRUM SILVER [Concomitant]
  12. CALCIUM [Concomitant]
  13. HYDROCODONE BITARTRATE [Concomitant]

REACTIONS (4)
  - DRUG INTERACTION [None]
  - MALAISE [None]
  - NAUSEA [None]
  - VERTIGO [None]
